FAERS Safety Report 8519969-9 (Version None)
Quarter: 2012Q2

REPORT INFORMATION
  Report Type: 
  Country: None (occurrence: None)
  Receive Date: 20120406
  Receipt Date: 20090903
  Transmission Date: 20120825
  Serious: Yes (Hospitalization)
  Sender: FDA-Public Use
  Company Number: PHEH2009US10356

PATIENT
  Sex: Female

DRUGS (4)
  1. CALCIFEROL (ERGOCALCIFEROL) [Concomitant]
  2. VITAMIN TAB [Concomitant]
  3. TASIGNA [Suspect]
     Indication: BONE NEOPLASM MALIGNANT
     Dosage: 400 MG, Q12H
     Dates: start: 20090601
  4. CALCIUM CARBONATE [Concomitant]

REACTIONS (1)
  - RASH [None]
